FAERS Safety Report 5217802-4 (Version None)
Quarter: 2006Q4

REPORT INFORMATION
  Report Type: 
  Country: None (occurrence: None)
  Receive Date: 20061130
  Receipt Date: 20060719
  Transmission Date: 20070319
  Serious: Yes (Other)
  Sender: FDA-Public Use
  Company Number: US200607003292

PATIENT
  Age: 44 Year
  Sex: Female

DRUGS (2)
  1. ZYPREXA [Suspect]
     Indication: INSOMNIA
     Dosage: UNK
     Dates: end: 20060301
  2. KLONOPIN [Concomitant]

REACTIONS (4)
  - BURNING SENSATION [None]
  - FEELING DRUNK [None]
  - LIP PAIN [None]
  - SUICIDAL IDEATION [None]
